FAERS Safety Report 7356523-9 (Version None)
Quarter: 2011Q1

REPORT INFORMATION
  Report Type: 
  Country: None (occurrence: None)
  Receive Date: 20110316
  Receipt Date: 20110302
  Transmission Date: 20110831
  Serious: Yes (Other)
  Sender: FDA-Public Use
  Company Number: PHHY2011AU13092

PATIENT
  Age: 76 Year
  Sex: Male

DRUGS (6)
  1. AMIODARONE HCL [Concomitant]
     Route: 048
  2. ISCOVER [Concomitant]
     Dosage: UNK
     Route: 048
  3. ACLASTA [Suspect]
     Indication: OSTEOPOROSIS
     Dosage: UNK
     Route: 042
     Dates: start: 20110121
  4. LIPITOR [Concomitant]
     Route: 048
  5. NORVASC [Concomitant]
     Dosage: UNK
     Route: 048
  6. WARFARIN [Concomitant]
     Route: 048

REACTIONS (2)
  - INFLUENZA LIKE ILLNESS [None]
  - HALLUCINATION [None]
